FAERS Safety Report 11741227 (Version 3)
Quarter: 2016Q1

REPORT INFORMATION
  Report Type: Report from Study
  Country: US (occurrence: US)
  Receive Date: 20151116
  Receipt Date: 20160307
  Transmission Date: 20160525
  Serious: Yes (Hospitalization, Other)
  Sender: FDA-Public Use
  Company Number: US-AMGEN-USASP2015119929

PATIENT
  Age: 76 Year
  Sex: Female

DRUGS (3)
  1. ENBREL [Suspect]
     Active Substance: ETANERCEPT
     Indication: RHEUMATOID ARTHRITIS
     Dosage: 50 MG, UNK
     Route: 065
     Dates: start: 2012
  2. FOLIC ACID. [Concomitant]
     Active Substance: FOLIC ACID
     Dosage: UNK
  3. METHOTREXATE [Concomitant]
     Active Substance: METHOTREXATE
     Dosage: UNK

REACTIONS (21)
  - Knee operation [Unknown]
  - Sepsis [Unknown]
  - Fatigue [Unknown]
  - Fear [Unknown]
  - Drug dose omission [Unknown]
  - Rheumatoid arthritis [Unknown]
  - Cardiac disorder [Unknown]
  - Intervertebral disc protrusion [Unknown]
  - Diverticulitis [Unknown]
  - Blood pressure abnormal [Unknown]
  - Incorrect dose administered [Unknown]
  - Musculoskeletal disorder [Unknown]
  - Device issue [Unknown]
  - Injection site pruritus [Unknown]
  - Osteoarthritis [Unknown]
  - Pain [Unknown]
  - Mobility decreased [Unknown]
  - Injection site irritation [Unknown]
  - Injection site haemorrhage [Unknown]
  - Knee arthroplasty [Unknown]
  - Renal disorder [Unknown]

NARRATIVE: CASE EVENT DATE: 2013
